FAERS Safety Report 7824722-5 (Version None)
Quarter: 2011Q4

REPORT INFORMATION
  Report Type: 
  Country: None (occurrence: None)
  Receive Date: 20111019
  Receipt Date: 20111012
  Transmission Date: 20120403
  Serious: Yes (Death, Other)
  Sender: FDA-Public Use
  Company Number: PHHY2011JP91174

PATIENT

DRUGS (3)
  1. CYCLOSPORINE [Suspect]
     Indication: CHRONIC GRAFT VERSUS HOST DISEASE
  2. CYCLOSPORINE [Suspect]
     Indication: STEM CELL TRANSPLANT
     Dosage: UNK UKN, UNK
  3. PREDNISOLONE [Suspect]
     Dosage: UNK UKN, UNK

REACTIONS (5)
  - ACUTE MYELOID LEUKAEMIA [None]
  - HAEMATURIA [None]
  - CYTOMEGALOVIRUS INFECTION [None]
  - BK VIRUS INFECTION [None]
  - VIRAL HAEMORRHAGIC CYSTITIS [None]
